FAERS Safety Report 25848221 (Version 1)
Quarter: 2025Q3

REPORT INFORMATION
  Report Type: Spontaneous
  Country: US (occurrence: None)
  Receive Date: 20250925
  Receipt Date: 20250925
  Transmission Date: 20251021
  Serious: Yes (Hospitalization)
  Sender: FDA-CTU
  Company Number: None

PATIENT
  Sex: Male

DRUGS (11)
  1. REVLIMID [Suspect]
     Active Substance: LENALIDOMIDE
     Indication: Plasma cell myeloma
     Dosage: FREQUENCY : EVERY OTHER DAY;?
     Route: 048
     Dates: start: 20250912
  2. ALLOPURINOL TAB 300MG [Concomitant]
  3. CALCIUM GARB CHW 500MG [Concomitant]
  4. CETIRIZINE HCL [Concomitant]
     Active Substance: CETIRIZINE HYDROCHLORIDE
  5. DARZALEX INJ FASPRO [Concomitant]
  6. DARZALEX SOL 100/5ML [Concomitant]
  7. ELIQUIS TAB 2.SMG [Concomitant]
  8. GAMMAGARD INJ 1OGM/100 [Concomitant]
  9. GLUCOSAMINE TAB 500MG [Concomitant]
  10. LIDO/PRILOCN CRE 2.5-2.5% [Concomitant]
  11. MAGNESIUM CAP 125MG [Concomitant]

REACTIONS (11)
  - Insomnia [None]
  - Hypoaesthesia [None]
  - Asthenia [None]
  - Cough [None]
  - Sputum increased [None]
  - Change of bowel habit [None]
  - Fatigue [None]
  - Skin lesion [None]
  - Femoral neck fracture [None]
  - Pneumonia [None]
  - Cytopenia [None]
